FAERS Safety Report 8501865 (Version 2)
Quarter: 2012Q4

REPORT INFORMATION
  Report Type: 
  Country: US (occurrence: US)
  Receive Date: 20120410
  Receipt Date: 20120920
  Transmission Date: 20130627
  Serious: Yes (Hospitalization)
  Sender: FDA-Public Use
  Company Number: US-BAYER-2012-032798

PATIENT
  Age: 38 Year
  Sex: Female
  Weight: 83.9 kg

DRUGS (35)
  1. YASMIN [Suspect]
     Indication: ACNE
     Dosage: UNK
     Dates: start: 20100120, end: 20100331
  2. OCELLA [Suspect]
     Indication: ACNE
     Dosage: UNK
     Dates: start: 20091019, end: 20091116
  3. YAZ [Suspect]
     Dosage: UNK
  4. ATENOLOL [Concomitant]
     Indication: HYPERTENSION
     Dosage: UNK
     Dates: start: 2000
  5. ATENOLOL [Concomitant]
     Indication: HYPERTENSION
     Dosage: 50 mg tablet, 1 q Day
     Route: 048
     Dates: start: 20100120
  6. ATENOLOL [Concomitant]
     Indication: HYPERTENSION
     Dosage: 50 mg tablet, 1 q Day
     Route: 048
     Dates: start: 20100203
  7. ATENOLOL [Concomitant]
     Indication: HYPERTENSION
     Dosage: 25 mg, daily
     Dates: start: 20100331
  8. FIORICET [Concomitant]
     Indication: MIGRAINE
     Dosage: UNK
     Dates: start: 2006
  9. FIORICET [Concomitant]
     Indication: HEADACHE
     Dosage: UNK
     Dates: start: 20100103, end: 20100326
  10. FIORICET [Concomitant]
     Indication: MIGRAINE
     Dosage: 325 mg-50mg-40mg  p.r.n
     Route: 048
     Dates: start: 20100120
  11. FIORICET [Concomitant]
     Indication: MIGRAINE
     Dosage: 325 mg-50mg-40mg tablet, p.r.n
     Route: 048
     Dates: start: 20100331
  12. SEPTRA [Concomitant]
     Indication: URINARY TRACT INFECTION
     Dosage: UNK
     Dates: start: 20100105
  13. SPIRONOLACTONE [Concomitant]
     Indication: ACNE
     Dosage: 25 mg, [one] QD
     Route: 048
     Dates: start: 20100120
  14. DUAC [Concomitant]
     Indication: ACNE
     Dosage: UNK, Q PM (every evening)
     Dates: start: 20100120
  15. MACROBID [Concomitant]
     Indication: URINARY TRACT INFECTION
     Dosage: UNK
     Dates: start: 20100120
  16. FINACEA 15% GEL [Concomitant]
     Dosage: UNK, Q AM
     Dates: start: 20100120
  17. FINACEA 15% GEL [Concomitant]
     Dosage: UNK, Q AM
     Dates: start: 20100201
  18. ALPRAZOLAM [Concomitant]
     Dosage: 0.5 mg, UNK
     Dates: start: 20100201
  19. FLONASE [Concomitant]
     Dosage: 0.05 mg/inh, 2 sprays q Day
     Route: 045
     Dates: start: 20100120
  20. FLONASE [Concomitant]
     Dosage: 0.05 mg/inh, 2 sprays q Day
     Route: 045
     Dates: start: 20100203
  21. LYRICA [Concomitant]
     Dosage: 75 mg, UNK
     Route: 048
     Dates: start: 20100120
  22. LYRICA [Concomitant]
     Dosage: 75 mg, UNK
     Route: 048
     Dates: start: 20100203
  23. VITAMIN D [Concomitant]
     Dosage: 50000 unit capsule
     Route: 048
     Dates: start: 20100120
  24. VITAMIN D [Concomitant]
     Dosage: 50000 unit capsule
     Route: 048
     Dates: start: 20100203
  25. VALIUM [Concomitant]
     Dosage: 10 mg, TID
     Route: 048
     Dates: start: 20100120
  26. VALIUM [Concomitant]
     Dosage: 10 mg, TID
     Route: 048
     Dates: start: 20100203
  27. XANAX [Concomitant]
     Indication: ANXIETY
     Dosage: 0.5 mg, TID q day
     Route: 048
     Dates: start: 20100120
  28. XANAX [Concomitant]
     Indication: ANXIETY
     Dosage: 0.5 mg, TID q day
     Route: 048
     Dates: start: 20100203
  29. CIPROFLOXACIN HCL [Concomitant]
     Indication: DYSURIA
     Dosage: 500 mg, q 12 hr, 10 days
     Route: 048
     Dates: start: 20100203
  30. ULTRACET [Concomitant]
     Dosage: UNK
     Dates: start: 20100129, end: 20100302
  31. DIAZEPAM [Concomitant]
     Indication: ANXIETY
     Dosage: 10 mg, UNK
     Dates: start: 20090203, end: 20100324
  32. DIAZEPAM [Concomitant]
     Indication: ANXIETY
     Dosage: 10 mg, UNK
     Dates: start: 20100301, end: 20100324
  33. HYDROCHLOROTHIAZIDE [Concomitant]
     Dosage: 25 mg, one daily
     Dates: start: 20100203
  34. HYDROCHLOROTHIAZIDE [Concomitant]
     Dosage: 25 mg, one daily
     Dates: start: 20100331
  35. ATIVAN [Concomitant]
     Indication: ANXIETY
     Dosage: UNK

REACTIONS (11)
  - Pulmonary embolism [None]
  - Deep vein thrombosis [Recovered/Resolved]
  - Pulmonary embolism [None]
  - Injury [None]
  - Pain [None]
  - Pain in extremity [Recovered/Resolved]
  - Oedema peripheral [Recovered/Resolved]
  - Dizziness [None]
  - Syncope [None]
  - Anxiety [None]
  - Dizziness [None]
